FAERS Safety Report 6199838-2 (Version None)
Quarter: 2009Q2

REPORT INFORMATION
  Report Type: 
  Country: None (occurrence: None)
  Receive Date: 20090520
  Receipt Date: 20090520
  Transmission Date: 20091009
  Serious: No
  Sender: FDA-Public Use
  Company Number: None

PATIENT
  Age: 68 Year
  Sex: Male
  Weight: 127.46 kg

DRUGS (2)
  1. VALSARTAN [Suspect]
     Indication: HYPERTENSION
     Dosage: 320MG EVERY DAY PO
     Route: 048
     Dates: start: 20051004, end: 20061208
  2. HYDROCHLOROTHIAZIDE [Suspect]
     Dosage: 50MG EVERY DAY PO
     Route: 048
     Dates: start: 20060915, end: 20061204

REACTIONS (2)
  - BLOOD CREATININE INCREASED [None]
  - BLOOD UREA INCREASED [None]
